FAERS Safety Report 6938475-6 (Version None)
Quarter: 2010Q3

REPORT INFORMATION
  Report Type: 
  Country: None (occurrence: None)
  Receive Date: 20100818
  Receipt Date: 20100805
  Transmission Date: 20110219
  Serious: Yes (Other)
  Sender: FDA-Public Use
  Company Number: MPS1-1000357

PATIENT
  Age: 29 Year
  Sex: Female
  Weight: 61 kg

DRUGS (3)
  1. ALDURAZYME [Suspect]
     Indication: MUCOPOLYSACCHARIDOSIS I
     Dosage: 37.7 MG,
     Dates: start: 20021218
  2. FLUINDIONE (FLUINDIONE) [Concomitant]
  3. LUTENYL (NOMEGESTROL ACETATE) [Concomitant]

REACTIONS (18)
  - ABDOMINAL PAIN [None]
  - ANXIETY [None]
  - BRONCHIAL HYPERREACTIVITY [None]
  - CHILLS [None]
  - COUGH [None]
  - HEADACHE [None]
  - HYPOTENSION [None]
  - INFUSION RELATED REACTION [None]
  - NAUSEA [None]
  - OXYGEN SATURATION DECREASED [None]
  - PAPILLOEDEMA [None]
  - POOR VENOUS ACCESS [None]
  - PULMONARY CONGESTION [None]
  - PYREXIA [None]
  - RASH [None]
  - TACHYCARDIA [None]
  - URINARY GLYCOSAMINOGLYCANS INCREASED [None]
  - VISION BLURRED [None]
